FAERS Safety Report 25572032 (Version 1)
Quarter: 2025Q3

REPORT INFORMATION
  Report Type: Spontaneous
  Country: CN (occurrence: CN)
  Receive Date: 20250717
  Receipt Date: 20250717
  Transmission Date: 20251020
  Serious: Yes (Hospitalization, Other)
  Sender: PFIZER
  Company Number: CN-PFIZER INC-PV202500084331

PATIENT
  Age: 59 Year
  Sex: Female
  Weight: 62 kg

DRUGS (2)
  1. CYTARABINE [Suspect]
     Active Substance: CYTARABINE
     Indication: Acute leukaemia
     Dosage: 150 MG, DAYS 1-7
     Route: 041
     Dates: start: 20250623, end: 20250629
  2. DAUNORUBICIN HYDROCHLORIDE [Suspect]
     Active Substance: DAUNORUBICIN HYDROCHLORIDE
     Indication: Acute leukaemia
     Dosage: 60 MG, DAYS 1-3
     Route: 041
     Dates: start: 20250623, end: 20250623

REACTIONS (4)
  - Platelet count decreased [Recovering/Resolving]
  - White blood cell count decreased [Unknown]
  - Pyrexia [Unknown]
  - Retinal haemorrhage [Recovering/Resolving]

NARRATIVE: CASE EVENT DATE: 20250101
